FAERS Safety Report 15423832 (Version 1)
Quarter: 2018Q3

REPORT INFORMATION
  Report Type: Spontaneous
  Country: US (occurrence: US)
  Receive Date: 20180920
  Receipt Date: 20180920
  Transmission Date: 20181010
  Serious: Yes (Disabling)
  Sender: FDA-Public Use
  Company Number: None

PATIENT
  Age: 50 Year
  Sex: Female
  Weight: 58.5 kg

DRUGS (8)
  1. PRAVASTATIN. [Concomitant]
     Active Substance: PRAVASTATIN
  2. ATORVASTATIN TAB 40 MG [Suspect]
     Active Substance: ATORVASTATIN
     Indication: BLOOD CHOLESTEROL INCREASED
     Dosage: ?          QUANTITY:1 TABLET(S);?
     Route: 048
  3. FLUOXETINE [Concomitant]
     Active Substance: FLUOXETINE HYDROCHLORIDE
  4. CPAP [Concomitant]
     Active Substance: DEVICE
  5. AMLODIPINE [Concomitant]
     Active Substance: AMLODIPINE BESYLATE
  6. DESLORATADINE. [Concomitant]
     Active Substance: DESLORATADINE
  7. WOMENS GUMMY MUTI??VITAMIN [Concomitant]
  8. CALCIUM CHEWS [Concomitant]

REACTIONS (7)
  - Loss of personal independence in daily activities [None]
  - Hypotonia [None]
  - Myalgia [None]
  - Gait disturbance [None]
  - Sciatica [None]
  - Asthenia [None]
  - Walking aid user [None]

NARRATIVE: CASE EVENT DATE: 20170928
